FAERS Safety Report 13656821 (Version 1)
Quarter: 2017Q2

REPORT INFORMATION
  Report Type: Spontaneous
  Country: None (occurrence: GB)
  Receive Date: 20170615
  Receipt Date: 20170615
  Transmission Date: 20170830
  Serious: No
  Sender: FDA-Public Use
  Company Number: GB-ALLERGAN-2016-16059

PATIENT
  Sex: Female

DRUGS (1)
  1. KENTERA (WATSON LABORATORIES) [Suspect]
     Active Substance: OXYBUTYNIN

REACTIONS (2)
  - Product quality issue [None]
  - Product adhesion issue [Unknown]
